FAERS Safety Report 10185988 (Version 1)
Quarter: 2014Q2

REPORT INFORMATION
  Report Type: Spontaneous
  Country: PT (occurrence: PT)
  Receive Date: 20140521
  Receipt Date: 20140521
  Transmission Date: 20141212
  Serious: Yes (Other)
  Sender: FDA-Public Use
  Company Number: PT-PFIZER INC-2014133181

PATIENT
  Age: 42 Year
  Sex: Female

DRUGS (2)
  1. SUTENT [Suspect]
     Indication: THYROID CANCER
     Route: 048
  2. LEVOTHYROXINE [Concomitant]

REACTIONS (3)
  - Lactic acidosis [Recovered/Resolved]
  - Abdominal pain [Recovered/Resolved]
  - Off label use [Unknown]
